FAERS Safety Report 19982770 (Version 1)
Quarter: 2021Q4

REPORT INFORMATION
  Report Type: Spontaneous
  Country: US (occurrence: US)
  Receive Date: 20211022
  Receipt Date: 20211022
  Transmission Date: 20220303
  Serious: No
  Sender: FDA-Public Use
  Company Number: US-JNJFOC-20211022615

PATIENT
  Age: 30 Month
  Sex: Male
  Weight: 15.44 kg

DRUGS (1)
  1. MOTRIN INFANTS [Suspect]
     Active Substance: IBUPROFEN
     Indication: Pyrexia
     Dosage: 2 DOSES OF 1.8ML
     Route: 065

REACTIONS (1)
  - Product administered to patient of inappropriate age [Unknown]
